FAERS Safety Report 17841650 (Version 3)
Quarter: 2020Q3

REPORT INFORMATION
  Report Type: Report from Study
  Country: EG (occurrence: EG)
  Receive Date: 20200529
  Receipt Date: 20200901
  Transmission Date: 20201103
  Serious: Yes (Other)
  Sender: FDA-Public Use
  Company Number: EG-ELI_LILLY_AND_COMPANY-EG202005005435

PATIENT
  Age: 71 Year
  Sex: Female

DRUGS (10)
  1. FORTEO [Suspect]
     Active Substance: TERIPARATIDE
     Indication: OSTEOPOROSIS
     Dosage: 20 UG, DAILY
     Route: 058
     Dates: start: 20160427, end: 20160826
  2. ATACAND PLUS [Concomitant]
     Active Substance: CANDESARTAN CILEXETIL\HYDROCHLOROTHIAZIDE
     Indication: HYPERTENSION
     Dosage: UNK, EACH MORNING
  3. METHOTREXATE. [Concomitant]
     Active Substance: METHOTREXATE
     Indication: SJOGREN^S SYNDROME
     Dosage: 3 TIMES ON THURSDAY, WEEKLY (1/W)
  4. CONCOR 5 PLUS [Concomitant]
     Indication: HYPERTENSION
     Dosage: UNK, DAILY (AT NIGHT)
  5. FORTEO [Suspect]
     Active Substance: TERIPARATIDE
     Dosage: 20 UG, DAILY
     Route: 058
     Dates: start: 20200511
  6. TRYPTIZOL [Suspect]
     Active Substance: AMITRIPTYLINE HYDROCHLORIDE
     Indication: PRODUCT USED FOR UNKNOWN INDICATION
     Dosage: 10 MG, DAILY
     Route: 065
  7. FORTEO [Suspect]
     Active Substance: TERIPARATIDE
     Indication: BONE DISORDER
     Dosage: 20 UG, DAILY
     Route: 058
     Dates: start: 2019
  8. FORTEO [Suspect]
     Active Substance: TERIPARATIDE
     Dosage: 20 UG, DAILY
     Route: 058
     Dates: start: 20200513
  9. FOLICAP [Concomitant]
     Indication: SJOGREN^S SYNDROME
     Dosage: UNK, 3/W (3 TIMES A WEEK)
  10. OSTEOCARE [CALCIUM;COLECALCIFEROL;MAGNESIUM;Z [Concomitant]
     Indication: BONE DISORDER

REACTIONS (4)
  - Hypotension [Not Recovered/Not Resolved]
  - Dry throat [Unknown]
  - Inappropriate schedule of product administration [Not Recovered/Not Resolved]
  - Dehydration [Unknown]

NARRATIVE: CASE EVENT DATE: 2012
